FAERS Safety Report 15762728 (Version 2)
Quarter: 2019Q1

REPORT INFORMATION
  Report Type: Report from Study
  Country: IT (occurrence: IT)
  Receive Date: 20181226
  Receipt Date: 20190320
  Transmission Date: 20190417
  Serious: Yes (Other)
  Sender: FDA-Public Use
  Company Number: IT-MYLANLABS-2018M1095804

PATIENT
  Age: 72 Year
  Sex: Female

DRUGS (5)
  1. PANTORC [Concomitant]
     Active Substance: PANTOPRAZOLE SODIUM
     Dosage: UNK
  2. ENALAPRIL [Suspect]
     Active Substance: ENALAPRIL
     Indication: HYPERTENSION
     Dosage: 5 MILLIGRAM, QD
     Route: 048
  3. CARVEDILOL. [Suspect]
     Active Substance: CARVEDILOL
     Indication: HYPERTENSION
     Dosage: 12.5 MILLIGRAM, QD
     Route: 048
  4. TORVAST [Concomitant]
     Active Substance: ATORVASTATIN
     Dosage: UNK
  5. BRILIQUE [Concomitant]
     Active Substance: TICAGRELOR
     Dosage: 2 DOSAGE FORM

REACTIONS (2)
  - Drug ineffective [Recovering/Resolving]
  - Blood pressure increased [Recovering/Resolving]

NARRATIVE: CASE EVENT DATE: 20180511
